FAERS Safety Report 5091720-7 (Version None)
Quarter: 2006Q3

REPORT INFORMATION
  Report Type: 
  Country: None (occurrence: None)
  Receive Date: 20060824
  Receipt Date: 20060811
  Transmission Date: 20061208
  Serious: Yes (Death)
  Sender: FDA-Public Use
  Company Number: 2006EU002331

PATIENT
  Sex: 0

DRUGS (1)
  1. PROGRAF [Suspect]
     Indication: LIVER TRANSPLANT
     Dosage: D, ORAL
     Route: 048

REACTIONS (7)
  - BLINDNESS CORTICAL [None]
  - CONVULSION [None]
  - HAEMORRHAGE INTRACRANIAL [None]
  - HEADACHE [None]
  - ISCHAEMIC STROKE [None]
  - LEUKOENCEPHALOPATHY [None]
  - TREMOR [None]
